FAERS Safety Report 14741474 (Version 1)
Quarter: 2018Q2

REPORT INFORMATION
  Report Type: Spontaneous
  Country: CN (occurrence: CN)
  Receive Date: 20180410
  Receipt Date: 20180410
  Transmission Date: 20180711
  Serious: Yes (Other)
  Sender: FDA-Public Use
  Company Number: CN-PFIZER INC-2018143904

PATIENT
  Age: 9 Year
  Sex: Female
  Weight: 26 kg

DRUGS (1)
  1. AZITHROMYCIN ANHYDROUS. [Suspect]
     Active Substance: AZITHROMYCIN ANHYDROUS
     Indication: COUGH
     Dosage: 0.125 G, 1X/DAY
     Route: 048
     Dates: start: 20180104, end: 20180104

REACTIONS (4)
  - Rash [Recovered/Resolved]
  - Tachypnoea [Recovered/Resolved]
  - Ocular hyperaemia [Unknown]
  - Eye swelling [Unknown]

NARRATIVE: CASE EVENT DATE: 20180104
